FAERS Safety Report 14614913 (Version 1)
Quarter: 2018Q1

REPORT INFORMATION
  Report Type: Spontaneous
  Country: FR (occurrence: FR)
  Receive Date: 20180308
  Receipt Date: 20180308
  Transmission Date: 20180509
  Serious: Yes (Other)
  Sender: FDA-Public Use
  Company Number: FR-MERCK KGAA-2043335

PATIENT
  Age: 38 Year
  Sex: Female

DRUGS (1)
  1. NOVOTHYROX [Suspect]
     Active Substance: LEVOTHYROXINE SODIUM
     Indication: POST PROCEDURAL HYPOTHYROIDISM

REACTIONS (12)
  - Social avoidant behaviour [None]
  - Anxiety [None]
  - Weight increased [None]
  - Nervousness [None]
  - Muscle spasms [None]
  - Malaise [None]
  - Thyroxine free decreased [Not Recovered/Not Resolved]
  - Headache [None]
  - Arthralgia [None]
  - Blood thyroid stimulating hormone increased [Not Recovered/Not Resolved]
  - Fatigue [None]
  - Social problem [None]

NARRATIVE: CASE EVENT DATE: 20170216
